FAERS Safety Report 10060215 (Version 1)
Quarter: 2014Q2

REPORT INFORMATION
  Report Type: Spontaneous
  Country: US (occurrence: US)
  Receive Date: 20140404
  Receipt Date: 20140404
  Transmission Date: 20141212
  Serious: Yes (Other)
  Sender: FDA-Public Use
  Company Number: US-BRISTOL-MYERS SQUIBB COMPANY-20572830

PATIENT
  Age: 62 Year
  Sex: Female
  Weight: 90.7 kg

DRUGS (1)
  1. BYETTA PEN DISPOSABLE [Suspect]
     Indication: TYPE 2 DIABETES MELLITUS
     Dosage: STR:BYETTA 250MCG/ML  10MCG
     Dates: start: 201402

REACTIONS (5)
  - Upper limb fracture [Recovering/Resolving]
  - Joint injury [Recovering/Resolving]
  - Fall [Recovering/Resolving]
  - Underdose [Unknown]
  - Product quality issue [Unknown]
